FAERS Safety Report 19449177 (Version 1)
Quarter: 2021Q2

REPORT INFORMATION
  Report Type: Spontaneous
  Country: US (occurrence: US)
  Receive Date: 20210622
  Receipt Date: 20210622
  Transmission Date: 20210717
  Serious: Yes (Hospitalization)
  Sender: FDA-Public Use
  Company Number: US-ASTRAZENECA-2021A527125

PATIENT
  Age: 911 Month
  Sex: Female
  Weight: 86.2 kg

DRUGS (2)
  1. BUDESONIDE AND FORMOTEROL AEROSOL 80/4.5 [Suspect]
     Active Substance: BUDESONIDE\FORMOTEROL FUMARATE
     Indication: ASTHMA
     Dosage: 80/4.5
     Route: 055
     Dates: start: 2019, end: 201906
  2. BUDESONIDE AND FORMOTEROL AEROSOL 160/4.5 [Suspect]
     Active Substance: BUDESONIDE\FORMOTEROL FUMARATE
     Indication: ASTHMA
     Dosage: 160/4.5, 2 PUFFS TWO TIMES A DAY
     Route: 055

REACTIONS (9)
  - Product dose omission issue [Unknown]
  - Fatigue [Unknown]
  - Diabetes mellitus [Unknown]
  - Weight increased [Unknown]
  - Lethargy [Unknown]
  - Insomnia [Unknown]
  - Off label use of device [Unknown]
  - Asthma [Unknown]
  - Wheezing [Unknown]

NARRATIVE: CASE EVENT DATE: 201907
